FAERS Safety Report 11646572 (Version 1)
Quarter: 2015Q4

REPORT INFORMATION
  Report Type: Spontaneous
  Country: US (occurrence: US)
  Receive Date: 20151020
  Receipt Date: 20151020
  Transmission Date: 20160304
  Serious: No
  Sender: FDA-Public Use
  Company Number: US-ROCHE-ITM201506IM017956

PATIENT
  Sex: Female
  Weight: 63.56 kg

DRUGS (2)
  1. ESBRIET [Suspect]
     Active Substance: PIRFENIDONE
     Indication: IDIOPATHIC PULMONARY FIBROSIS
     Dosage: 2403 MG
     Route: 048
     Dates: end: 201505
  2. ESBRIET [Suspect]
     Active Substance: PIRFENIDONE
     Dosage: 3 CAPSULES BY MOUTH THREE TIMES A DAY WITH?FOOD.
     Route: 048
     Dates: start: 20150617

REACTIONS (7)
  - Decreased appetite [Unknown]
  - Pruritus [Unknown]
  - Pain of skin [Unknown]
  - Nausea [Unknown]
  - Sinusitis [Unknown]
  - Weight decreased [Unknown]
  - Dermatitis contact [Unknown]
